FAERS Safety Report 7349965-9 (Version None)
Quarter: 2011Q1

REPORT INFORMATION
  Report Type: 
  Country: None (occurrence: None)
  Receive Date: 20110314
  Receipt Date: 20110307
  Transmission Date: 20110831
  Serious: Yes (Life-Threatening, Hospitalization)
  Sender: FDA-Public Use
  Company Number: US-ELI_LILLY_AND_COMPANY-US201010005220

PATIENT
  Sex: Female
  Weight: 91.61 kg

DRUGS (9)
  1. PEMETREXED [Suspect]
     Indication: NON-SMALL CELL LUNG CANCER STAGE IV
     Dosage: 500 MG/M2, DAY 1 EVERY 21 DAYS
     Route: 042
     Dates: start: 20100113, end: 20101013
  2. ZYRTEC [Concomitant]
     Indication: RHINITIS ALLERGIC
     Dates: start: 20100324
  3. HYDROCHLOROTHIAZIDE [Concomitant]
     Indication: HYPERTENSION
     Dosage: UNK, UNK
     Dates: start: 20070101, end: 20101013
  4. BEVACIZUMAB [Suspect]
     Indication: NON-SMALL CELL LUNG CANCER STAGE IV
     Dosage: 15 MG/KG, DAY 1 EVERY 21 DAYS
     Route: 042
     Dates: start: 20100113, end: 20101013
  5. EXFORGE [Concomitant]
     Indication: HYPERTENSION
     Dates: start: 20070101
  6. CARBOPLATIN [Suspect]
     Indication: NON-SMALL CELL LUNG CANCER STAGE IV
     Dosage: 6 AUC, DAY 1 EVERY 21 DAYS
     Route: 042
     Dates: start: 20100113, end: 20100317
  7. FOLIC ACID [Concomitant]
     Indication: PREMEDICATION
     Dates: start: 20091230
  8. SIMVASTATIN [Concomitant]
     Indication: HYPERCHOLESTEROLAEMIA
     Dates: start: 20080101
  9. VITAMIN B-12 [Concomitant]
     Indication: PREMEDICATION
     Dosage: 1000 UG, UNK
     Dates: start: 20091230

REACTIONS (4)
  - PULMONARY EMBOLISM [None]
  - EPISTAXIS [None]
  - THROMBOCYTOPENIA [None]
  - INTERNATIONAL NORMALISED RATIO INCREASED [None]
